FAERS Safety Report 15618739 (Version 1)
Quarter: 2018Q4

REPORT INFORMATION
  Report Type: Report from Study
  Country: DE (occurrence: DE)
  Receive Date: 20181114
  Receipt Date: 20181114
  Transmission Date: 20190205
  Serious: Yes (Other)
  Sender: FDA-Public Use
  Company Number: DE-BIOMARINAP-DE-2018-120710

PATIENT
  Sex: Female

DRUGS (4)
  1. KUVAN [Suspect]
     Active Substance: SAPROPTERIN DIHYDROCHLORIDE
     Dosage: 27 MILLIGRAM/KILOGRAM
     Route: 048
     Dates: start: 20130416, end: 20130717
  2. KUVAN [Suspect]
     Active Substance: SAPROPTERIN DIHYDROCHLORIDE
     Dosage: 23.6 MILLIGRAM/KILOGRAM
     Route: 048
     Dates: start: 20141022, end: 201511
  3. KUVAN [Suspect]
     Active Substance: SAPROPTERIN DIHYDROCHLORIDE
     Dosage: 21 MILLIGRAM/KILOGRAM
     Route: 048
     Dates: start: 20130718, end: 20140921
  4. KUVAN [Suspect]
     Active Substance: SAPROPTERIN DIHYDROCHLORIDE
     Indication: PHENYLKETONURIA
     Dosage: 21 MILLIGRAM/KILOGRAM, QD
     Route: 048
     Dates: start: 20111028, end: 20130415

REACTIONS (1)
  - Overdose [Recovered/Resolved]

NARRATIVE: CASE EVENT DATE: 20130416
